FAERS Safety Report 25508925 (Version 2)
Quarter: 2025Q3

REPORT INFORMATION
  Report Type: Report from Study
  Country: CN (occurrence: CN)
  Receive Date: 20250703
  Receipt Date: 20250813
  Transmission Date: 20251021
  Serious: Yes (Life-Threatening)
  Sender: JOHNSON AND JOHNSON
  Company Number: CN-JNJFOC-20250630609

PATIENT
  Age: 29 Year
  Sex: Female

DRUGS (16)
  1. ESKETAMINE [Suspect]
     Active Substance: ESKETAMINE
     Indication: Major depression
     Route: 045
     Dates: start: 20250425
  2. ESKETAMINE [Suspect]
     Active Substance: ESKETAMINE
     Indication: Suicidal ideation
     Route: 045
     Dates: start: 20250429
  3. ESKETAMINE [Suspect]
     Active Substance: ESKETAMINE
     Route: 045
     Dates: start: 20250502
  4. ESKETAMINE [Suspect]
     Active Substance: ESKETAMINE
     Route: 045
     Dates: start: 20250506
  5. LORAZEPAM [Suspect]
     Active Substance: LORAZEPAM
     Indication: Major depression
     Route: 065
  6. LORAZEPAM [Suspect]
     Active Substance: LORAZEPAM
     Indication: Suicidal ideation
  7. LORAZEPAM [Concomitant]
     Active Substance: LORAZEPAM
     Indication: Major depression
     Dosage: DAILY
     Route: 048
     Dates: start: 20250423
  8. LORAZEPAM [Concomitant]
     Active Substance: LORAZEPAM
     Indication: Suicidal ideation
  9. VENLAFAXINE HYDROCHLORIDE [Concomitant]
     Active Substance: VENLAFAXINE HYDROCHLORIDE
     Indication: Major depression
     Dosage: DAILY
     Route: 048
     Dates: start: 20250507
  10. VENLAFAXINE HYDROCHLORIDE [Concomitant]
     Active Substance: VENLAFAXINE HYDROCHLORIDE
     Indication: Suicidal ideation
  11. OLUDESVENLAFAXINE HYDROCHLORIDE SUSTAINED-RELEASE TABLETS [Concomitant]
     Indication: Major depression
     Route: 048
     Dates: start: 20250510
  12. OLUDESVENLAFAXINE HYDROCHLORIDE SUSTAINED-RELEASE TABLETS [Concomitant]
     Indication: Suicidal ideation
  13. BUSPIRONE HYDROCHLORIDE [Concomitant]
     Active Substance: BUSPIRONE HYDROCHLORIDE
     Indication: Major depression
     Route: 048
     Dates: start: 20250603
  14. BUSPIRONE HYDROCHLORIDE [Concomitant]
     Active Substance: BUSPIRONE HYDROCHLORIDE
     Indication: Suicidal ideation
  15. ESCITALOPRAM OXALATE [Concomitant]
     Active Substance: ESCITALOPRAM OXALATE
     Indication: Major depression
     Route: 048
  16. ESCITALOPRAM OXALATE [Concomitant]
     Active Substance: ESCITALOPRAM OXALATE
     Indication: Suicidal ideation

REACTIONS (1)
  - Suicide attempt [Recovered/Resolved]

NARRATIVE: CASE EVENT DATE: 20250530
